FAERS Safety Report 10648239 (Version 1)
Quarter: 2014Q4

REPORT INFORMATION
  Report Type: Spontaneous
  Country: US (occurrence: None)
  Receive Date: 20141211
  Receipt Date: 20141211
  Transmission Date: 20150529
  Serious: Yes (Other)
  Sender: FDA-Public Use
  Company Number: None

PATIENT
  Age: 69 Year
  Sex: Female
  Weight: 78.47 kg

DRUGS (9)
  1. LAMOTRIGINE. [Suspect]
     Active Substance: LAMOTRIGINE
     Dosage: 1 TAB BID ORAL
     Route: 048
     Dates: start: 20140409, end: 20141206
  2. LEVOTHYROXINE [Concomitant]
     Active Substance: LEVOTHYROXINE
  3. VICODIN [Concomitant]
     Active Substance: ACETAMINOPHEN\HYDROCODONE BITARTRATE
  4. SIMVASTATIN. [Concomitant]
     Active Substance: SIMVASTATIN
  5. DULOXETINE [Concomitant]
     Active Substance: DULOXETINE
  6. FERROUS SULFATE [Concomitant]
     Active Substance: FERROUS SULFATE\FERROUS SULFATE, DRIED
  7. OMEPRAZOLE. [Concomitant]
     Active Substance: OMEPRAZOLE
  8. ZALEPLON. [Concomitant]
     Active Substance: ZALEPLON
  9. COENZYME [Concomitant]

REACTIONS (5)
  - Fall [None]
  - Face injury [None]
  - Head injury [None]
  - Drop attacks [None]
  - Balance disorder [None]

NARRATIVE: CASE EVENT DATE: 20141203
